FAERS Safety Report 25263596 (Version 2)
Quarter: 2025Q2

REPORT INFORMATION
  Report Type: Spontaneous
  Country: US (occurrence: US)
  Receive Date: 20250502
  Receipt Date: 20250520
  Transmission Date: 20250717
  Serious: Yes (Other)
  Sender: PFIZER
  Company Number: US-PFIZER INC-PV202500051874

PATIENT
  Age: 75 Year
  Sex: Female
  Weight: 97.959 kg

DRUGS (15)
  1. PAXLOVID [Suspect]
     Active Substance: NIRMATRELVIR\RITONAVIR
     Indication: COVID-19 treatment
     Dosage: 3 TABLETS X TWICE DAILY
     Route: 048
     Dates: start: 20250412, end: 20250415
  2. GLIPIZIDE XL [Concomitant]
     Active Substance: GLIPIZIDE
     Indication: Type 2 diabetes mellitus
     Dosage: 10 MG-1 TAB AM + PM
     Dates: start: 201303
  3. OZEMPIC [Concomitant]
     Active Substance: SEMAGLUTIDE
     Indication: Type 2 diabetes mellitus
     Dosage: 0.25MG ONCE/WK X4 WKS
     Dates: start: 20241102
  4. OZEMPIC [Concomitant]
     Active Substance: SEMAGLUTIDE
     Dosage: 0.5MG ONCE/WK
  5. OZEMPIC [Concomitant]
     Active Substance: SEMAGLUTIDE
     Dosage: 1MG ONCE/WK
  6. TRESIBA [Concomitant]
     Active Substance: INSULIN DEGLUDEC
     Indication: Type 2 diabetes mellitus
     Dosage: 200 UNIT/ML 48 TO 54 UNITS DAILY
     Dates: start: 20240119
  7. TRESIBA [Concomitant]
     Active Substance: INSULIN DEGLUDEC
     Dosage: 50 IU, DAILY (FLEX PEN)
     Dates: start: 20240908
  8. ALDACTONE [Concomitant]
     Active Substance: SPIRONOLACTONE
     Indication: Lymphoedema
     Dosage: 25MG-2 TAB DAILY - AM + PM (FROM 18MAY, YEAR UNKNOWN)
  9. HYDROCHLOROTHIAZIDE [Concomitant]
     Active Substance: HYDROCHLOROTHIAZIDE
     Indication: Lymphoedema
     Dosage: 25 MG - 1 TABLET DAILY (FROM 15DEC, YEAR UNKNOWN)
  10. VITAMIN D3 [Concomitant]
     Active Substance: CHOLECALCIFEROL
     Dosage: 2000 UNITS DAILY 50MCG (FROM 24NOV, YEAR UNKNOWN)
  11. CALCIUM [Concomitant]
     Active Substance: CALCIUM
     Dosage: 38MG 1 CAPSULE DAILY (FROM 24NOV, YEAR UNKNOWN)
  12. CALCIUM + MAGNESIUM + ZINK [Concomitant]
     Indication: Pain
  13. WELLNESS FORMULA [Concomitant]
     Indication: Immune system disorder
  14. TYLENOL [Concomitant]
     Active Substance: ACETAMINOPHEN
     Indication: Pyrexia
     Dosage: 500 MG, 2X/DAY
  15. TYLENOL [Concomitant]
     Active Substance: ACETAMINOPHEN
     Indication: Pain

REACTIONS (6)
  - Blood glucose decreased [Recovered/Resolved]
  - Dizziness [Recovered/Resolved]
  - Gait disturbance [Recovered/Resolved]
  - Headache [Recovered/Resolved]
  - Tinnitus [Recovered/Resolved]
  - Blood pressure increased [Recovered/Resolved]

NARRATIVE: CASE EVENT DATE: 20250415
